FAERS Safety Report 25769370 (Version 1)
Quarter: 2025Q3

REPORT INFORMATION
  Report Type: Spontaneous
  Country: US (occurrence: US)
  Receive Date: 20250906
  Receipt Date: 20250906
  Transmission Date: 20251020
  Serious: Yes (Death, Other)
  Sender: AMGEN
  Company Number: US-AMGEN-USASP2025169922

PATIENT
  Age: 63 Year
  Sex: Male

DRUGS (5)
  1. PREDNISONE [Suspect]
     Active Substance: PREDNISONE
     Indication: Hairy cell leukaemia
     Dosage: 1 MILLIGRAM/KILOGRAM, QD
     Route: 065
  2. RITUXIMAB [Suspect]
     Active Substance: RITUXIMAB
     Indication: Hairy cell leukaemia
     Route: 065
  3. CLADRIBINE [Concomitant]
     Active Substance: CLADRIBINE
     Route: 040
  4. CLADRIBINE [Concomitant]
     Active Substance: CLADRIBINE
     Route: 040
     Dates: start: 20240509
  5. ETOPOSIDE [Concomitant]
     Active Substance: ETOPOSIDE
     Route: 065

REACTIONS (4)
  - Death [Fatal]
  - Hepatic failure [Unknown]
  - Haemophagocytic lymphohistiocytosis [Unknown]
  - Lactic acidosis [Unknown]
